FAERS Safety Report 10665306 (Version 1)
Quarter: 2014Q4

REPORT INFORMATION
  Report Type: Spontaneous
  Country: US (occurrence: US)
  Receive Date: 20141219
  Receipt Date: 20141219
  Transmission Date: 20150529
  Serious: No
  Sender: FDA-Public Use
  Company Number: US-PFIZER INC-2014347607

PATIENT
  Age: 54 Year
  Sex: Female

DRUGS (1)
  1. ESTRING [Suspect]
     Active Substance: ESTRADIOL
     Dosage: ONE RING EVERY 3 MONTHS
     Route: 067
     Dates: start: 20120809

REACTIONS (3)
  - Product quality issue [Unknown]
  - Vulvovaginal pain [Unknown]
  - Vulvovaginal mycotic infection [Unknown]
